FAERS Safety Report 7451743-7 (Version None)
Quarter: 2011Q2

REPORT INFORMATION
  Report Type: 
  Country: None (occurrence: None)
  Receive Date: 20110502
  Receipt Date: 20100716
  Transmission Date: 20111010
  Serious: No
  Sender: FDA-Public Use
  Company Number: US-ASTRAZENECA-2010SE33483

PATIENT
  Age: 69 Year
  Sex: Female

DRUGS (2)
  1. NEXIUM [Suspect]
     Indication: GASTROOESOPHAGEAL REFLUX DISEASE
     Route: 048
  2. SYMBICORT [Concomitant]
     Indication: ASTHMA

REACTIONS (5)
  - THROAT IRRITATION [None]
  - DYSPHONIA [None]
  - DYSPHAGIA [None]
  - REFUSAL OF TREATMENT BY PATIENT [None]
  - ASTHMA [None]
